FAERS Safety Report 9487294 (Version 3)
Quarter: 2013Q3

REPORT INFORMATION
  Report Type: Spontaneous
  Country: US (occurrence: US)
  Receive Date: 20130829
  Receipt Date: 20130906
  Transmission Date: 20140515
  Serious: Yes (Hospitalization)
  Sender: FDA-Public Use
  Company Number: US-BAXTER-2013BAX032006

PATIENT
  Age: 80 Year
  Sex: Female

DRUGS (1)
  1. DIANEAL LOW CALCIUM [Suspect]
     Indication: PERITONEAL DIALYSIS
     Route: 033
     Dates: start: 2010

REACTIONS (5)
  - Cerebrovascular accident [Recovering/Resolving]
  - Pulmonary thrombosis [Recovering/Resolving]
  - Aortic aneurysm [Recovering/Resolving]
  - Back pain [Recovered/Resolved]
  - Back pain [Recovering/Resolving]
